FAERS Safety Report 4875997-6 (Version None)
Quarter: 2005Q4

REPORT INFORMATION
  Report Type: 
  Country: None (occurrence: None)
  Receive Date: 20051207
  Receipt Date: 20051101
  Transmission Date: 20060501
  Serious: No
  Sender: FDA-Public Use
  Company Number: 2005RL000170

PATIENT
  Age: 70 Year
  Sex: Male
  Weight: 86.637 kg

DRUGS (4)
  1. OMACOR [Suspect]
     Indication: BLOOD TRIGLYCERIDES INCREASED
     Dosage: 1 GM; BID; PO
     Route: 048
     Dates: start: 20051011
  2. OMACOR [Suspect]
     Indication: HIGH DENSITY LIPOPROTEIN INCREASED
     Dosage: 1 GM; BID; PO
     Route: 048
     Dates: start: 20051011
  3. OMACOR [Suspect]
     Indication: LOW DENSITY LIPOPROTEIN DECREASED
     Dosage: 1 GM; BID; PO
     Route: 048
     Dates: start: 20051011
  4. ASPIRIN [Concomitant]

REACTIONS (1)
  - ABDOMINAL PAIN LOWER [None]
